FAERS Safety Report 8166492-X (Version None)
Quarter: 2012Q1

REPORT INFORMATION
  Report Type: 
  Country: None (occurrence: None)
  Receive Date: 20120227
  Receipt Date: 20111007
  Transmission Date: 20120608
  Serious: No
  Sender: FDA-Public Use
  Company Number: US-MYLANLABS-2011S1019464

PATIENT
  Age: 26 Year
  Sex: Male
  Weight: 95.26 kg

DRUGS (1)
  1. AMNESTEEM [Suspect]
     Indication: CELLULITIS
     Route: 048
     Dates: start: 20110301, end: 20110701

REACTIONS (1)
  - ASPARTATE AMINOTRANSFERASE INCREASED [None]
